FAERS Safety Report 6500418-7 (Version None)
Quarter: 2009Q4

REPORT INFORMATION
  Report Type: 
  Country: None (occurrence: None)
  Receive Date: 20091216
  Receipt Date: 20091209
  Transmission Date: 20100525
  Serious: Yes (Life-Threatening, Hospitalization, Other)
  Sender: FDA-Public Use
  Company Number: PHHY2009JP49468

PATIENT
  Sex: Female
  Weight: 35 kg

DRUGS (7)
  1. VOLTAREN [Suspect]
     Indication: PAIN IN EXTREMITY
     Dosage: 25 MG, UNK
     Route: 054
     Dates: start: 20080613
  2. VOLTAREN [Suspect]
     Indication: BACK PAIN
  3. ALESION [Concomitant]
     Dosage: 10 MG, UNK
     Route: 048
  4. SOLU-MEDROL [Concomitant]
     Dosage: 120 MG, UNK
     Route: 042
  5. SOLU-MEDROL [Concomitant]
     Dosage: 40 MG, UNK
     Route: 042
     Dates: start: 20080615
  6. SOLU-MEDROL [Concomitant]
     Dosage: 40 MG, UNK
     Route: 042
     Dates: start: 20080616
  7. PREDNISOLONE [Concomitant]
     Dosage: 30 MG, DAILY
     Route: 048
     Dates: start: 20080618

REACTIONS (12)
  - ALANINE AMINOTRANSFERASE INCREASED [None]
  - ASPARTATE AMINOTRANSFERASE INCREASED [None]
  - BLOOD CREATINE PHOSPHOKINASE INCREASED [None]
  - BLOOD UREA INCREASED [None]
  - CARDIAC FAILURE ACUTE [None]
  - CARDIOMEGALY [None]
  - DYSPNOEA [None]
  - EOSINOPHILIC MYOCARDITIS [None]
  - PERICARDIAL EFFUSION [None]
  - PLEURAL EFFUSION [None]
  - VENTRICULAR HYPOKINESIA [None]
  - WHITE BLOOD CELL COUNT INCREASED [None]
